FAERS Safety Report 8205762-3 (Version None)
Quarter: 2012Q1

REPORT INFORMATION
  Report Type: 
  Country: None (occurrence: None)
  Receive Date: 20120313
  Receipt Date: 20120312
  Transmission Date: 20120608
  Serious: Yes (Hospitalization)
  Sender: FDA-Public Use
  Company Number: US-PFIZER INC-2011089663

PATIENT
  Sex: Female

DRUGS (27)
  1. DUONEB [Concomitant]
  2. CALCIUM [Concomitant]
  3. QVAR 40 [Concomitant]
  4. XOPENEX [Concomitant]
  5. DIPHENHYDRAMINE [Concomitant]
  6. MISOPROSTOL [Concomitant]
  7. FLEXERIL [Concomitant]
  8. BUTALBITAL AND CAFFEINE AND PARACETAMOL [Concomitant]
  9. MAGNESIUM [Concomitant]
  10. TOBI [Suspect]
     Dosage: 300 MG, 2X/DAY
     Route: 055
     Dates: start: 20010101
  11. VIOXX [Suspect]
  12. ALBUTEROL [Concomitant]
  13. THEOPHYLLINE [Concomitant]
  14. ASTELIN [Concomitant]
  15. NAPROXEN [Concomitant]
  16. ACIPHEX [Concomitant]
  17. VITAMIN E [Concomitant]
     Dosage: 400 GY.
  18. ASCORBIC ACID [Concomitant]
     Dosage: 1000 MG, UNK
  19. IRON [Concomitant]
  20. ALPHA LIPOIC ACID [Concomitant]
  21. IBANDRONATE SODIUM [Concomitant]
  22. SULFAMETHOXAZOLE [Suspect]
  23. VITAMIN D [Concomitant]
     Dosage: 2000 IU, UNK
  24. ACIDOPHILUS ^ZYMA^ [Concomitant]
  25. PROTONIX [Suspect]
     Dosage: UNK
  26. SKELAXIN [Suspect]
  27. PATANOL [Concomitant]

REACTIONS (10)
  - GASTRIC ULCER [None]
  - MUSCLE SPASMS [None]
  - INSOMNIA [None]
  - ANAEMIA [None]
  - TINNITUS [None]
  - URTICARIA [None]
  - CEREBROVASCULAR ACCIDENT [None]
  - NAUSEA [None]
  - DRUG INEFFECTIVE [None]
  - PRURITUS [None]
